FAERS Safety Report 8863626 (Version 1)
Quarter: 2012Q4

REPORT INFORMATION
  Report Type: 
  Country: US (occurrence: US)
  Receive Date: 20121024
  Receipt Date: 20121024
  Transmission Date: 20130627
  Serious: No
  Sender: FDA-Public Use
  Company Number: US-AMGEN-USASP2011063189

PATIENT
  Age: 51 Year
  Sex: Male
  Weight: 99.77 kg

DRUGS (6)
  1. ENBREL [Suspect]
     Indication: RHEUMATOID ARTHRITIS
     Dosage: 50 mg, qwk
     Route: 058
  2. ENBREL [Suspect]
     Indication: OSTEOARTHRITIS
  3. VALIUM                             /00017001/ [Concomitant]
     Dosage: 10 mg, UNK
     Route: 048
  4. PERCOCET                           /00446701/ [Concomitant]
     Dosage: 650 mg, UNK
     Route: 048
  5. FISH OIL [Concomitant]
  6. ORENCIA [Concomitant]
     Dosage: 250 mg, UNK
     Route: 058

REACTIONS (1)
  - Drug ineffective [Unknown]
